FAERS Safety Report 23505975 (Version 1)
Quarter: 2024Q1

REPORT INFORMATION
  Report Type: Spontaneous
  Country: US (occurrence: None)
  Receive Date: 20240208
  Receipt Date: 20240208
  Transmission Date: 20240410
  Serious: Yes (Hospitalization, Other)
  Sender: FDA-Public Use
  Company Number: None

PATIENT
  Age: 54 Year
  Sex: Female
  Weight: 71.1 kg

DRUGS (9)
  1. RECLAST [Suspect]
     Active Substance: ZOLEDRONIC ACID
     Indication: Osteoporosis
     Dosage: OTHER QUANTITY : 1 IV;?OTHER FREQUENCY : ONCE;?
     Route: 058
     Dates: start: 20231229, end: 20231229
  2. Dexcom [Concomitant]
  3. DEVICE [Concomitant]
     Active Substance: DEVICE
  4. synthroid Wellbutrin [Concomitant]
  5. atorvsstatin [Concomitant]
  6. LISINOPRIL [Concomitant]
     Active Substance: LISINOPRIL
  7. TRINTELLIX [Concomitant]
     Active Substance: VORTIOXETINE HYDROBROMIDE
  8. Calcium 400/day [Concomitant]
  9. Tylenol/advil [Concomitant]

REACTIONS (15)
  - Back pain [None]
  - Arthralgia [None]
  - Flank pain [None]
  - Arthralgia [None]
  - Pyrexia [None]
  - Movement disorder [None]
  - Screaming [None]
  - Crying [None]
  - Feeling abnormal [None]
  - Fear [None]
  - Blood pressure decreased [None]
  - Respiratory rate increased [None]
  - Sepsis [None]
  - Pneumonia [None]
  - Inflammation [None]

NARRATIVE: CASE EVENT DATE: 20231231
